FAERS Safety Report 5223138-8 (Version None)
Quarter: 2007Q1

REPORT INFORMATION
  Report Type: 
  Country: None (occurrence: None)
  Receive Date: 20070123
  Receipt Date: 20070122
  Transmission Date: 20070707
  Serious: Yes (Death, Hospitalization)
  Sender: FDA-Public Use
  Company Number: 2007S1000022

PATIENT
  Age: 2 Day
  Sex: Male

DRUGS (9)
  1. NITRIC OXIDE [Suspect]
     Indication: LUNG DISORDER
     Dosage: 5 PPM; INH
     Route: 055
     Dates: start: 20070102, end: 20070109
  2. NITRIC OXIDE [Suspect]
     Indication: PROPHYLAXIS
     Dosage: 5 PPM; INH
     Route: 055
     Dates: start: 20070102, end: 20070109
  3. AMPICILLIN [Concomitant]
  4. TOBRAMYCIN [Concomitant]
  5. INSULIN [Concomitant]
  6. PLASMA [Concomitant]
  7. RED BLOOD CELLS [Concomitant]
  8. PHYTONADIONE [Concomitant]
  9. FUROSEMIDE [Concomitant]

REACTIONS (4)
  - COAGULOPATHY [None]
  - INTRAVENTRICULAR HAEMORRHAGE NEONATAL [None]
  - LIFE SUPPORT [None]
  - PATENT DUCTUS ARTERIOSUS [None]
